FAERS Safety Report 17843967 (Version 1)
Quarter: 2020Q2

REPORT INFORMATION
  Report Type: Spontaneous
  Country: AU (occurrence: AU)
  Receive Date: 20200601
  Receipt Date: 20200601
  Transmission Date: 20200714
  Serious: Yes (Hospitalization, Other)
  Sender: FDA-Public Use
  Company Number: AU-ALS-000055

PATIENT
  Age: 53 Year
  Sex: Female

DRUGS (2)
  1. SERTRALINE [Concomitant]
     Active Substance: SERTRALINE HYDROCHLORIDE
     Indication: BIPOLAR DISORDER
     Dosage: DISCHARGED HOME ON THIS DOSE
     Route: 065
  2. QUETIAPINE. [Suspect]
     Active Substance: QUETIAPINE
     Indication: BIPOLAR DISORDER
     Dosage: 25 MG MANE AND 100 MG NOCTE,  INCREASED TO 250 MG/DAY
     Route: 065

REACTIONS (8)
  - Indifference [Unknown]
  - Dissociative amnesia [Unknown]
  - Critical illness [Recovered/Resolved]
  - Delirium [Recovered/Resolved]
  - Somnolence [Unknown]
  - Sedation [Unknown]
  - Muscle spasms [Unknown]
  - Asthenia [Unknown]
